FAERS Safety Report 7926897 (Version 2)
Quarter: 2013Q1

REPORT INFORMATION
  Report Type: Spontaneous
  Country: US (occurrence: US)
  Receive Date: 20110502
  Receipt Date: 20130221
  Transmission Date: 20140127
  Serious: No
  Sender: FDA-Public Use
  Company Number: US-ASTRAZENECA-2011SE00968

PATIENT
  Age: 64 Year
  Sex: Female

DRUGS (1)
  1. NEXIUM [Suspect]
     Indication: GASTROOESOPHAGEAL REFLUX DISEASE
     Route: 048

REACTIONS (12)
  - H1N1 influenza [Unknown]
  - Pneumonia [Unknown]
  - Gastrooesophageal reflux disease [Unknown]
  - Aphagia [Unknown]
  - Joint swelling [Unknown]
  - Weight decreased [Unknown]
  - Head injury [Unknown]
  - Local swelling [Unknown]
  - Vertigo [Unknown]
  - Retching [Unknown]
  - Malaise [Unknown]
  - Drug dose omission [Unknown]
